FAERS Safety Report 8849922 (Version 3)
Quarter: 2012Q4

REPORT INFORMATION
  Report Type: 
  Country: US (occurrence: US)
  Receive Date: 20121019
  Receipt Date: 20121126
  Transmission Date: 20130627
  Serious: Yes (Other)
  Sender: FDA-Public Use
  Company Number: US-BAYER-2012-109319

PATIENT
  Age: 46 Year
  Sex: Male
  Weight: 111.11 kg

DRUGS (5)
  1. BETASERON [Suspect]
     Indication: RELAPSING-REMITTING MULTIPLE SCLEROSIS
     Dosage: 4 miu, QOD
     Route: 058
     Dates: start: 20120914, end: 2012
  2. BETASERON [Suspect]
     Indication: RELAPSING-REMITTING MULTIPLE SCLEROSIS
     Dosage: 6 miu, QOD
     Route: 058
     Dates: start: 2012
  3. COPAXONE [Suspect]
     Indication: RELAPSING-REMITTING MULTIPLE SCLEROSIS
     Dosage: 20 mg, QD
     Route: 058
     Dates: start: 19991119, end: 20001119
  4. TYLENOL [PARACETAMOL] [Concomitant]
     Indication: PREMEDICATION
  5. IBUPROFEN [Concomitant]
     Indication: PREMEDICATION

REACTIONS (9)
  - Feeling abnormal [Not Recovered/Not Resolved]
  - Influenza like illness [Not Recovered/Not Resolved]
  - Pyrexia [Not Recovered/Not Resolved]
  - Pyrexia [Not Recovered/Not Resolved]
  - Muscle contracture [Not Recovered/Not Resolved]
  - Pain [Not Recovered/Not Resolved]
  - Hyperhidrosis [Not Recovered/Not Resolved]
  - Asthenia [Not Recovered/Not Resolved]
  - Depression [None]
